FAERS Safety Report 22339235 (Version 1)
Quarter: 2023Q2

REPORT INFORMATION
  Report Type: Spontaneous
  Country: US (occurrence: US)
  Receive Date: 20230518
  Receipt Date: 20230518
  Transmission Date: 20230721
  Serious: Yes (Other)
  Sender: FDA-Public Use
  Company Number: US-PFIZER INC-PV202300085671

PATIENT
  Age: 29 Year
  Sex: Female
  Weight: 124.7 kg

DRUGS (1)
  1. MISOPROSTOL [Suspect]
     Active Substance: MISOPROSTOL
     Indication: Abortion induced
     Dosage: UNK
     Dates: start: 20230209

REACTIONS (4)
  - Post abortion haemorrhage [Unknown]
  - Abortion incomplete [Unknown]
  - Product residue present [Unknown]
  - Off label use [Unknown]

NARRATIVE: CASE EVENT DATE: 20230209
